FAERS Safety Report 10090573 (Version 2)
Quarter: 2014Q2

REPORT INFORMATION
  Report Type: Spontaneous
  Country: US (occurrence: US)
  Receive Date: 20140421
  Receipt Date: 20140513
  Transmission Date: 20141212
  Serious: Yes (Hospitalization)
  Sender: FDA-Public Use
  Company Number: US-BAYER-2014-056774

PATIENT
  Age: 24 Year
  Sex: Female

DRUGS (1)
  1. YASMIN [Suspect]

REACTIONS (1)
  - Pulmonary embolism [None]
